FAERS Safety Report 13777627 (Version 1)
Quarter: 2017Q3

REPORT INFORMATION
  Report Type: Spontaneous
  Country: US (occurrence: US)
  Receive Date: 20170721
  Receipt Date: 20170721
  Transmission Date: 20171127
  Serious: No
  Sender: FDA-Public Use
  Company Number: US-009507513-1707USA004473

PATIENT
  Sex: Female
  Weight: 130.16 kg

DRUGS (1)
  1. NEXPLANON [Suspect]
     Active Substance: ETONOGESTREL
     Indication: CONTRACEPTION
     Dosage: 1 DF, IN LEFT ARM, UNK
     Route: 065
     Dates: start: 20150928

REACTIONS (2)
  - Headache [Unknown]
  - Muscle spasms [Unknown]
